FAERS Safety Report 23396592 (Version 2)
Quarter: 2024Q1

REPORT INFORMATION
  Report Type: Spontaneous
  Country: US (occurrence: US)
  Receive Date: 20240112
  Receipt Date: 20240305
  Transmission Date: 20240410
  Serious: Yes (Death, Other)
  Sender: FDA-Public Use
  Company Number: US-BRISTOL-MYERS SQUIBB COMPANY-2024-005605

PATIENT
  Age: 77 Year
  Sex: Male

DRUGS (2)
  1. REBLOZYL [Suspect]
     Active Substance: LUSPATERCEPT-AAMT
     Indication: Myelodysplastic syndrome
     Dosage: DOSE : UNAVAILABLE;     FREQ : UNKNOWN, CALLER DID NOT HAVE THIS INFORMATION.?STRENGHT- 25MG AND 75M
     Route: 042
  2. REBLOZYL [Suspect]
     Active Substance: LUSPATERCEPT-AAMT
     Indication: Myelofibrosis

REACTIONS (5)
  - Malignant neoplasm progression [Fatal]
  - Renal failure [Unknown]
  - Anaemia [Unknown]
  - Hypotension [Unknown]
  - Condition aggravated [Unknown]
